FAERS Safety Report 21289149 (Version 1)
Quarter: 2022Q3

REPORT INFORMATION
  Report Type: Spontaneous
  Country: US (occurrence: None)
  Receive Date: 20220902
  Receipt Date: 20220902
  Transmission Date: 20221027
  Serious: No
  Sender: FDA-Public Use
  Company Number: None

PATIENT
  Age: 88 Year
  Weight: 46.22 kg

DRUGS (6)
  1. TAFINLAR [Suspect]
     Active Substance: DABRAFENIB MESYLATE
     Indication: Malignant melanoma
     Dosage: FREQUENCY : EVERY 12 HOURS;?
     Route: 048
  2. MEKINIST [Suspect]
     Active Substance: TRAMETINIB DIMETHYL SULFOXIDE
     Indication: Malignant melanoma
     Dosage: FREQUENCY : DAILY;?
     Route: 048
  3. CALCIUM 600+D [Concomitant]
  4. MYRBETRIQ [Concomitant]
     Active Substance: MIRABEGRON
  5. SIMVASTATIN [Concomitant]
     Active Substance: SIMVASTATIN
  6. TYLENOL [Concomitant]
     Active Substance: ACETAMINOPHEN

REACTIONS (1)
  - Disease progression [None]
